FAERS Safety Report 14213249 (Version 1)
Quarter: 2017Q4

REPORT INFORMATION
  Report Type: Spontaneous
  Country: CO (occurrence: CO)
  Receive Date: 20171122
  Receipt Date: 20171122
  Transmission Date: 20180321
  Serious: Yes (Hospitalization)
  Sender: FDA-Public Use
  Company Number: CO-PFIZER INC-2017496767

PATIENT
  Sex: Female

DRUGS (2)
  1. ZITROMAX [Suspect]
     Active Substance: AZITHROMYCIN
     Indication: TONSILLITIS
  2. ZITROMAX [Suspect]
     Active Substance: AZITHROMYCIN
     Indication: PHARYNGITIS
     Dosage: UNK
     Route: 048
     Dates: start: 20171108

REACTIONS (6)
  - Abdominal pain lower [Recovering/Resolving]
  - Vaginal ulceration [Recovering/Resolving]
  - Vaginal haemorrhage [Recovering/Resolving]
  - Tachycardia [Recovering/Resolving]
  - Dysuria [Recovering/Resolving]
  - Chills [Recovering/Resolving]

NARRATIVE: CASE EVENT DATE: 20171109
